FAERS Safety Report 7687966-1 (Version None)
Quarter: 2011Q3

REPORT INFORMATION
  Report Type: 
  Country: None (occurrence: None)
  Receive Date: 20110816
  Receipt Date: 20110816
  Transmission Date: 20111222
  Serious: No
  Sender: FDA-Public Use
  Company Number: None

PATIENT

DRUGS (1)
  1. ZEGERID [Suspect]

REACTIONS (9)
  - CONTACT LENS INTOLERANCE [None]
  - HYPERTENSION [None]
  - HYPOAESTHESIA [None]
  - CHILLS [None]
  - LIP SWELLING [None]
  - PRURITUS [None]
  - VISION BLURRED [None]
  - URTICARIA [None]
  - BLOOD GLUCOSE INCREASED [None]
